FAERS Safety Report 9358104 (Version 2)
Quarter: 2013Q3

REPORT INFORMATION
  Report Type: Spontaneous
  Country: FR (occurrence: FR)
  Receive Date: 20130620
  Receipt Date: 20130701
  Transmission Date: 20140515
  Serious: Yes (Hospitalization)
  Sender: FDA-Public Use
  Company Number: FR-009507513-1306FRA004189

PATIENT
  Age: 75 Year
  Sex: Female

DRUGS (8)
  1. SINGULAIR [Suspect]
     Indication: ASTHMA
     Dosage: 1 DF, QD
     Route: 048
     Dates: end: 20120827
  2. DIGOXINE NATIVELLE [Suspect]
     Indication: ARRHYTHMIA
     Dosage: 1 DF, QD
     Dates: end: 20120815
  3. KARDEGIC [Suspect]
     Indication: PROPHYLAXIS
     Dosage: 1 DF, QD
     Route: 048
  4. CARDENSIEL [Suspect]
     Indication: HYPERTENSION
     Dosage: 1 DF, QD
     Route: 048
     Dates: end: 20120815
  5. TEGRETOL [Suspect]
     Indication: NEURALGIA
     Dosage: 1 DF, QD
     Dates: end: 20120828
  6. TEGRETOL [Suspect]
     Dosage: 100 MG, QD
     Dates: start: 20120903
  7. SPECIAFOLDINE [Suspect]
     Dosage: 1 DF, QD
     Route: 048
     Dates: end: 20120827
  8. CACIT VITAMINE D3 [Suspect]
     Dosage: 1 DF, QD
     Dates: end: 20120815

REACTIONS (1)
  - Hyponatraemia [Recovered/Resolved]
